FAERS Safety Report 14406647 (Version 1)
Quarter: 2018Q1

REPORT INFORMATION
  Report Type: Spontaneous
  Country: NL (occurrence: NL)
  Receive Date: 20180118
  Receipt Date: 20180118
  Transmission Date: 20180509
  Serious: Yes (Other)
  Sender: FDA-Public Use
  Company Number: NL-TEVA-2018-NL-848322

PATIENT
  Age: 37 Year
  Sex: Female

DRUGS (5)
  1. DICLOFENAC [Concomitant]
     Active Substance: DICLOFENAC
     Dates: start: 201706, end: 201706
  2. TIBOLON [Concomitant]
  3. AMOXICILLINE CAPSULE, 500 MG (MILLIGRAM) [Suspect]
     Active Substance: AMOXICILLIN
     Indication: RESPIRATORY TRACT INFECTION
     Dosage: 3 TIMES A DAY
     Route: 065
     Dates: start: 20170926, end: 20171001
  4. SALBUTAMOL [Concomitant]
     Active Substance: ALBUTEROL
  5. IBUPROFEN. [Concomitant]
     Active Substance: IBUPROFEN

REACTIONS (1)
  - Tubulointerstitial nephritis [Recovering/Resolving]

NARRATIVE: CASE EVENT DATE: 20171026
